FAERS Safety Report 16485302 (Version 2)
Quarter: 2019Q3

REPORT INFORMATION
  Report Type: Spontaneous
  Country: NL (occurrence: NL)
  Receive Date: 20190627
  Receipt Date: 20190720
  Transmission Date: 20191004
  Serious: Yes (Other)
  Sender: FDA-Public Use
  Company Number: NL-009507513-1906NLD008596

PATIENT
  Sex: Male

DRUGS (4)
  1. COZAAR [Suspect]
     Active Substance: LOSARTAN POTASSIUM
     Dosage: 1 TABLET, QD
     Route: 048
  2. COZAAR [Suspect]
     Active Substance: LOSARTAN POTASSIUM
     Dosage: IN THE MORNING AROUND 7 O^CLOCK AND IN THE EVENING AROUND 8 O^CLOCK
     Route: 048
  3. COZAAR [Suspect]
     Active Substance: LOSARTAN POTASSIUM
     Dosage: BREAKS INTO TWO PIECES AND TAKES IT AROUND 7 O^CLOCK IN THE MORNING AND 6 O^CLOCK IN THE EVENING
     Route: 048
  4. COZAAR [Suspect]
     Active Substance: LOSARTAN POTASSIUM
     Dosage: HALF TABLET IN THE MORNING AND THE OTHER HALF AROUND 18:00/19:00 O^CLOCK
     Route: 048

REACTIONS (6)
  - Myocardial infarction [Unknown]
  - Blood pressure fluctuation [Unknown]
  - Drug ineffective [Unknown]
  - Blood pressure increased [Unknown]
  - Wrong technique in product usage process [Unknown]
  - Inappropriate schedule of product administration [Unknown]

NARRATIVE: CASE EVENT DATE: 20180317
